FAERS Safety Report 12908072 (Version 2)
Quarter: 2017Q1

REPORT INFORMATION
  Report Type: Spontaneous
  Country: US (occurrence: US)
  Receive Date: 20161103
  Receipt Date: 20170207
  Transmission Date: 20170428
  Serious: No
  Sender: FDA-Public Use
  Company Number: US-OTSUKA-2016_024374

PATIENT
  Sex: Male

DRUGS (2)
  1. ONZETRA [Suspect]
     Active Substance: SUMATRIPTAN SUCCINATE
     Indication: MIGRAINE
     Dosage: UNK (ONCE)
     Route: 048
     Dates: start: 201610
  2. ONZETRA [Suspect]
     Active Substance: SUMATRIPTAN SUCCINATE
     Dosage: UNK (ONCE)
     Route: 045
     Dates: start: 201610

REACTIONS (4)
  - Dysgeusia [Unknown]
  - Medication error [Unknown]
  - Wrong technique in product usage process [Unknown]
  - Mental impairment [Unknown]

NARRATIVE: CASE EVENT DATE: 201610
